FAERS Safety Report 23569956 (Version 1)
Quarter: 2024Q1

REPORT INFORMATION
  Report Type: Other
  Country: IN (occurrence: IN)
  Receive Date: 20240227
  Receipt Date: 20240227
  Transmission Date: 20240410
  Serious: Yes (Hospitalization, Other)
  Sender: FDA-Public Use
  Company Number: IN-Appco Pharma LLC-2153724

PATIENT
  Age: 29 Year
  Sex: Female

DRUGS (6)
  1. LABETALOL HYDROCHLORIDE [Suspect]
     Active Substance: LABETALOL HYDROCHLORIDE
     Route: 048
  2. WARFARIN SODIUM [Suspect]
     Active Substance: WARFARIN SODIUM
     Route: 065
  3. MAGNESIUM SULFATE [Suspect]
     Active Substance: MAGNESIUM SULFATE\MAGNESIUM SULFATE HEPTAHYDRATE
     Route: 042
  4. BETAMETHASONE [Suspect]
     Active Substance: BETAMETHASONE\BETAMETHASONE DIPROPIONATE
     Route: 065
  5. LABETALOL [Suspect]
     Active Substance: LABETALOL\LABETALOL HYDROCHLORIDE
     Route: 040
  6. HEPARIN [Suspect]
     Active Substance: HEPARIN SODIUM
     Route: 065

REACTIONS (3)
  - Maternal exposure during pregnancy [Unknown]
  - Drug ineffective [Unknown]
  - Premature delivery [Unknown]
